FAERS Safety Report 8848585 (Version 1)
Quarter: 2012Q4

REPORT INFORMATION
  Report Type: 
  Country: US (occurrence: MX)
  Receive Date: 20121018
  Receipt Date: 20121018
  Transmission Date: 20130627
  Serious: Yes (Death)
  Sender: FDA-Public Use
  Company Number: MX-ROXANE LABORATORIES, INC.-2012-EU-05187GD

PATIENT
  Age: 48 Year
  Sex: Female

DRUGS (4)
  1. OXAZEPAM [Suspect]
  2. IBOGAINE [Suspect]
     Indication: DRUG DETOXIFICATION
     Dosage: 14 mg/kg
  3. DIAZEPAM [Suspect]
  4. TEMAZEPAM [Suspect]

REACTIONS (2)
  - Acute myocardial infarction [Fatal]
  - Drug dependence [Unknown]
